FAERS Safety Report 8041570-4 (Version None)
Quarter: 2012Q1

REPORT INFORMATION
  Report Type: 
  Country: None (occurrence: None)
  Receive Date: 20120112
  Receipt Date: 20120109
  Transmission Date: 20120608
  Serious: Yes (Hospitalization, Other)
  Sender: FDA-Public Use
  Company Number: BE-BAYER-2011-077032

PATIENT
  Age: 61 Year
  Sex: Male

DRUGS (13)
  1. AMLODIPINE BESYLATE [Concomitant]
     Dosage: 5 MG, QD
     Dates: start: 20110902
  2. HYDROCORTONE [Concomitant]
     Dosage: 20 MG IN AM 10 MG IN PM
  3. FLUDROCORTISONE ACETATE [Concomitant]
     Dosage: 0.05 MG, OM
  4. BISOPROLOL FUMARATE [Concomitant]
     Dosage: 5 MG, QD
     Dates: start: 20110902
  5. NEXAVAR [Suspect]
     Dosage: 600 MG, QD
  6. LEGALON [Concomitant]
     Dosage: 1 A DAY
  7. OMEPRAZOLE [Concomitant]
     Dosage: 40 MG, OM
  8. MULTI-VITAMIN [Concomitant]
  9. NEXAVAR [Suspect]
     Dosage: 400 MG, QD
     Dates: start: 20111005
  10. NEXAVAR [Suspect]
     Indication: HEPATIC NEOPLASM MALIGNANT
     Dosage: 800 MG, UNK
     Dates: start: 20110808, end: 20110903
  11. BISOPROLOL FUMARATE [Concomitant]
     Dosage: 2.5 MG, QD
  12. NEXAVAR [Suspect]
     Dosage: 800 MG, UNK
     Dates: start: 20110914, end: 20111004
  13. CALCIUM [Concomitant]
     Dosage: 1 IN THE EVENING

REACTIONS (13)
  - HYPERTENSION [None]
  - ABSCESS INTESTINAL [None]
  - VISION BLURRED [None]
  - ABDOMINAL PAIN [None]
  - ABDOMINAL PAIN UPPER [None]
  - PHLEBITIS [None]
  - ORAL PAIN [None]
  - CHEST DISCOMFORT [None]
  - ENTEROCOLITIS [None]
  - DIZZINESS [None]
  - GLOSSODYNIA [None]
  - PALMAR-PLANTAR ERYTHRODYSAESTHESIA SYNDROME [None]
  - PYREXIA [None]
